FAERS Safety Report 12242939 (Version 1)
Quarter: 2016Q2

REPORT INFORMATION
  Report Type: Spontaneous
  Country: GB (occurrence: GB)
  Receive Date: 20160406
  Receipt Date: 20160406
  Transmission Date: 20160815
  Serious: Yes (Disabling)
  Sender: FDA-Public Use
  Company Number: GB-ASTRAZENECA-2016SE35067

PATIENT
  Age: 86 Year
  Sex: Female
  Weight: 57.2 kg

DRUGS (16)
  1. BRILIQUE [Suspect]
     Active Substance: TICAGRELOR
     Indication: MYOCARDIAL INFARCTION
     Route: 048
     Dates: start: 20151203, end: 20160201
  2. ASPIRIN. [Suspect]
     Active Substance: ASPIRIN
     Route: 048
  3. INDAPAMIDE. [Concomitant]
     Active Substance: INDAPAMIDE
  4. AMLODIPINE [Concomitant]
     Active Substance: AMLODIPINE BESYLATE
  5. PARACETAMOL [Concomitant]
     Active Substance: ACETAMINOPHEN
  6. BETAMETHASONE VALERATE. [Concomitant]
     Active Substance: BETAMETHASONE VALERATE
  7. TICAGRELOR [Concomitant]
     Active Substance: TICAGRELOR
  8. SAXAGLIPTIN [Concomitant]
     Active Substance: SAXAGLIPTIN
  9. NOVOMIX [Concomitant]
     Active Substance: INSULIN ASPART
  10. MACROGOL [Concomitant]
     Active Substance: POLYETHYLENE GLYCOLS
  11. BUMETANIDE. [Concomitant]
     Active Substance: BUMETANIDE
  12. FLUCLOXACILLIN [Concomitant]
     Active Substance: FLUCLOXACILLIN
  13. LOSARTAN. [Concomitant]
     Active Substance: LOSARTAN
  14. DIPROBASE [Concomitant]
     Active Substance: CHLOROCRESOL
  15. DONEPEZIL. [Concomitant]
     Active Substance: DONEPEZIL
  16. MIRTAZAPINE. [Concomitant]
     Active Substance: MIRTAZAPINE

REACTIONS (8)
  - Brain injury [Recovering/Resolving]
  - Transient ischaemic attack [Unknown]
  - Ocular hyperaemia [Recovered/Resolved]
  - Aphasia [Recovered/Resolved]
  - Incontinence [Recovering/Resolving]
  - Contusion [Recovered/Resolved]
  - Epilepsy [Recovered/Resolved]
  - Cerebral haemorrhage [Recovering/Resolving]
